FAERS Safety Report 5156881-X (Version None)
Quarter: 2006Q4

REPORT INFORMATION
  Report Type: 
  Country: None (occurrence: None)
  Receive Date: 20061115
  Receipt Date: 20061102
  Transmission Date: 20070319
  Serious: Yes (Hospitalization)
  Sender: FDA-Public Use
  Company Number: APP200600225

PATIENT
  Age: 46 Year
  Sex: Male

DRUGS (4)
  1. FLUOROURACIL [Suspect]
     Indication: GASTRIC CANCER
     Dosage: CYCLE 1, EVERY 28 DAYS (2200 MG, 1 D), INTRAVENOUS
     Route: 042
     Dates: start: 20060706, end: 20060711
  2. CISPLATIN [Suspect]
     Indication: GASTRIC CANCER
     Dosage: CYCLE 1 (200 MG, 1 IN 28 D), INTRAVENOUS
     Route: 042
     Dates: start: 20060706, end: 20060706
  3. DIFLUCAN [Concomitant]
  4. MORPHINE SULFATE [Concomitant]

REACTIONS (8)
  - CANDIDIASIS [None]
  - FEBRILE NEUTROPENIA [None]
  - GOUT [None]
  - HEART RATE INCREASED [None]
  - MUCOSAL INFLAMMATION [None]
  - OESOPHAGITIS [None]
  - ORAL PAIN [None]
  - PAIN IN EXTREMITY [None]
